FAERS Safety Report 17238850 (Version 1)
Quarter: 2020Q1

REPORT INFORMATION
  Report Type: Spontaneous
  Country: US (occurrence: US)
  Receive Date: 20200105
  Receipt Date: 20200105
  Transmission Date: 20200409
  Serious: No
  Sender: FDA-Public Use
  Company Number: None

PATIENT
  Age: 74 Year
  Sex: Female
  Weight: 81 kg

DRUGS (11)
  1. PANTOPRAZOLE [Concomitant]
     Active Substance: PANTOPRAZOLE
  2. METFORMIN [Concomitant]
     Active Substance: METFORMIN HYDROCHLORIDE
  3. METOPROLOL SUCCINATE XL [Concomitant]
     Active Substance: METOPROLOL SUCCINATE
  4. SIMVASTATIN. [Concomitant]
     Active Substance: SIMVASTATIN
  5. RANTIDINE 300MG TABLET AMN [Suspect]
     Active Substance: RANITIDINE
     Indication: DYSPEPSIA
     Dosage: ?          QUANTITY:4 TABLET(S);?
     Route: 048
  6. RANTIDINE 300MG TABLET AMN [Suspect]
     Active Substance: RANITIDINE
     Indication: GASTROOESOPHAGEAL REFLUX DISEASE
     Dosage: ?          QUANTITY:4 TABLET(S);?
     Route: 048
  7. LEVOTHYROXINE. [Concomitant]
     Active Substance: LEVOTHYROXINE
  8. FLUOXETINE [Concomitant]
     Active Substance: FLUOXETINE HYDROCHLORIDE
  9. FAMOTIDINE. [Concomitant]
     Active Substance: FAMOTIDINE
  10. VITAMIN C [Concomitant]
     Active Substance: ASCORBIC ACID
  11. DIAZEPAM. [Concomitant]
     Active Substance: DIAZEPAM

REACTIONS (3)
  - Hepatic cirrhosis [None]
  - Anaemia [None]
  - Iron deficiency anaemia [None]

NARRATIVE: CASE EVENT DATE: 20191202
